FAERS Safety Report 7474943-9 (Version None)
Quarter: 2011Q2

REPORT INFORMATION
  Report Type: 
  Country: None (occurrence: None)
  Receive Date: 20110512
  Receipt Date: 20110506
  Transmission Date: 20111010
  Serious: Yes (Death, Hospitalization, Other)
  Sender: FDA-Public Use
  Company Number: MX-SANOFI-AVENTIS-2011SA028368

PATIENT
  Age: 75 Year
  Sex: Male

DRUGS (2)
  1. LANTUS [Suspect]
     Indication: TYPE 2 DIABETES MELLITUS
     Route: 058
     Dates: start: 20100101, end: 20110101
  2. INSULINS AND ANALOGUES,FAST-ACTING [Concomitant]
     Indication: TYPE 2 DIABETES MELLITUS
     Route: 051
     Dates: start: 20110101, end: 20110224

REACTIONS (1)
  - ISCHAEMIC STROKE [None]
